FAERS Safety Report 25407047 (Version 1)
Quarter: 2025Q2

REPORT INFORMATION
  Report Type: Spontaneous
  Country: US (occurrence: US)
  Receive Date: 20250606
  Receipt Date: 20250606
  Transmission Date: 20250717
  Serious: No
  Sender: JOHNSON AND JOHNSON
  Company Number: US-JNJFOC-20250602050

PATIENT
  Age: 35 Year
  Sex: Female

DRUGS (4)
  1. UPTRAVI [Suspect]
     Active Substance: SELEXIPAG
     Indication: Product used for unknown indication
     Route: 048
  2. AMBRISENTAN [Suspect]
     Active Substance: AMBRISENTAN
  3. ADEMPAS [Concomitant]
     Active Substance: RIOCIGUAT
     Indication: Product used for unknown indication
     Route: 048
     Dates: start: 20240406
  4. EBB [Concomitant]
     Indication: Product used for unknown indication

REACTIONS (6)
  - Pain [Unknown]
  - Dizziness [Unknown]
  - Migraine [Unknown]
  - Hypersensitivity [Unknown]
  - Arthralgia [Unknown]
  - Pain in extremity [Unknown]
